FAERS Safety Report 10194930 (Version 1)
Quarter: 2014Q2

REPORT INFORMATION
  Report Type: Spontaneous
  Country: US (occurrence: US)
  Receive Date: 20140526
  Receipt Date: 20140526
  Transmission Date: 20141212
  Serious: No
  Sender: FDA-Public Use
  Company Number: US-009507513-1405USA011903

PATIENT
  Age: 79 Year
  Sex: Female

DRUGS (6)
  1. JANUVIA [Suspect]
     Indication: TYPE 2 DIABETES MELLITUS
     Dosage: 100 MG DAILY
     Route: 048
     Dates: start: 201403
  2. ALLOPURINOL [Concomitant]
  3. GLIMEPIRIDE [Concomitant]
  4. BYSTOLIC [Concomitant]
  5. LOVASTATIN [Concomitant]
  6. FENOFIBRATE [Concomitant]

REACTIONS (2)
  - Alopecia [Unknown]
  - Irritability [Unknown]
